FAERS Safety Report 9198069 (Version 1)
Quarter: 2013Q1

REPORT INFORMATION
  Report Type: Spontaneous
  Country: GB (occurrence: GB)
  Receive Date: 20130329
  Receipt Date: 20130329
  Transmission Date: 20140127
  Serious: Yes (Life-Threatening, Other)
  Sender: FDA-Public Use
  Company Number: PHHY2013GB029908

PATIENT
  Age: 9 Year
  Sex: Female
  Weight: 23 kg

DRUGS (1)
  1. MEROPENEM [Suspect]
     Indication: INFECTION
     Dosage: 1.3 G, UNK
     Route: 042
     Dates: start: 20130311, end: 20130311

REACTIONS (4)
  - Tachycardia [Recovered/Resolved]
  - Cyanosis [Recovered/Resolved]
  - Incorrect drug administration rate [Unknown]
  - Incorrect dose administered [Unknown]
